FAERS Safety Report 10036331 (Version 1)
Quarter: 2014Q1

REPORT INFORMATION
  Report Type: Spontaneous
  Country: GB (occurrence: GB)
  Receive Date: 20140325
  Receipt Date: 20140325
  Transmission Date: 20141002
  Serious: Yes (Life-Threatening)
  Sender: FDA-Public Use
  Company Number: PHHY2014GB031495

PATIENT
  Age: 24 Year
  Sex: Female

DRUGS (7)
  1. VALPROIC ACID [Suspect]
  2. LEVETIRACETAM [Suspect]
  3. RANITIDINE [Suspect]
  4. VENTOLIN [Suspect]
  5. MONTELUKAST SODIUM [Suspect]
  6. SERETIDE [Suspect]
  7. PRIADEL [Suspect]

REACTIONS (1)
  - Angioedema [Recovered/Resolved]
